FAERS Safety Report 9928647 (Version 1)
Quarter: 2014Q1

REPORT INFORMATION
  Report Type: Spontaneous
  Country: US (occurrence: None)
  Receive Date: 20140226
  Receipt Date: 20140226
  Transmission Date: 20141002
  Serious: Yes (Death)
  Sender: FDA-Public Use
  Company Number: None

PATIENT
  Age: 63 Year
  Sex: Male
  Weight: 97.07 kg

DRUGS (12)
  1. HEPARIN 1000 UNITS/ML PORCINE [Suspect]
     Indication: CORONARY ARTERY BYPASS
     Dosage: 35 K UNITS  IV
     Route: 042
     Dates: start: 20121208
  2. ASA [Concomitant]
  3. LOPRESSOR [Concomitant]
  4. LIPITOR [Concomitant]
  5. ALBUTEROL [Concomitant]
  6. FORADIL [Concomitant]
  7. SPIRIVA [Concomitant]
  8. EFFEXOR [Concomitant]
  9. GLUCOTROL [Concomitant]
  10. APIDRA [Suspect]
  11. NITRO [Concomitant]
  12. VASOTEC [Suspect]

REACTIONS (5)
  - Hypotension [None]
  - Haemorrhage [None]
  - Wound secretion [None]
  - Lactic acidosis [None]
  - Rash [None]
